FAERS Safety Report 23913588 (Version 1)
Quarter: 2024Q2

REPORT INFORMATION
  Report Type: Spontaneous
  Country: CN (occurrence: CN)
  Receive Date: 20240529
  Receipt Date: 20240529
  Transmission Date: 20240716
  Serious: Yes (Hospitalization)
  Sender: FDA-Public Use
  Company Number: CN-002147023-NVSC2024CN111977

PATIENT
  Age: 43 Year
  Sex: Female
  Weight: 50 kg

DRUGS (1)
  1. CARBAMAZEPINE [Suspect]
     Active Substance: CARBAMAZEPINE
     Indication: Trigeminal neuralgia
     Dosage: 0.20 G, BID
     Route: 048
     Dates: start: 20240327, end: 20240408

REACTIONS (14)
  - Toxic epidermal necrolysis [Recovering/Resolving]
  - Dermatitis allergic [Recovering/Resolving]
  - Drug eruption [Recovering/Resolving]
  - Temperature intolerance [Recovering/Resolving]
  - Liver function test abnormal [Recovering/Resolving]
  - Skin disorder [Recovering/Resolving]
  - Trigeminal neuralgia [Recovering/Resolving]
  - Rash [Recovering/Resolving]
  - Pruritus [Recovering/Resolving]
  - Erythema [Recovering/Resolving]
  - Papule [Recovering/Resolving]
  - Swelling face [Recovering/Resolving]
  - Effusion [Recovering/Resolving]
  - Vulvovaginal pruritus [Recovering/Resolving]

NARRATIVE: CASE EVENT DATE: 20240407
